FAERS Safety Report 4580328-5 (Version None)
Quarter: 2005Q1

REPORT INFORMATION
  Report Type: 
  Country: None (occurrence: None)
  Receive Date: 20050214
  Receipt Date: 20031113
  Transmission Date: 20050727
  Serious: No
  Sender: FDA-Public Use
  Company Number: US-GLAXOSMITHKLINE-A0439647A

PATIENT
  Age: 44 Year
  Sex: Female

DRUGS (4)
  1. LAMICTAL [Suspect]
     Indication: BIPOLAR DISORDER
     Dosage: 25MG PER DAY
     Route: 048
     Dates: start: 20031024, end: 20031028
  2. PAXIL [Concomitant]
     Dosage: 62.5MG PER DAY
     Route: 048
  3. KLONOPIN [Concomitant]
     Dosage: 1MG TWICE PER DAY
     Route: 048
  4. GEODON [Concomitant]
     Dosage: 80MG PER DAY
     Route: 048

REACTIONS (7)
  - HYPOAESTHESIA ORAL [None]
  - MOUTH ULCERATION [None]
  - ORAL PAIN [None]
  - PHARYNGOLARYNGEAL PAIN [None]
  - SWOLLEN TONGUE [None]
  - TONGUE DISORDER [None]
  - TOOTHACHE [None]
